FAERS Safety Report 7927772-3 (Version None)
Quarter: 2011Q4

REPORT INFORMATION
  Report Type: 
  Country: None (occurrence: None)
  Receive Date: 20111116
  Receipt Date: 20111107
  Transmission Date: 20120403
  Serious: Yes (Death, Hospitalization)
  Sender: FDA-Public Use
  Company Number: 2011PL000157

PATIENT
  Age: 21 Year
  Sex: Male

DRUGS (2)
  1. MERCAPTOPURINE [Suspect]
     Indication: CROHN'S DISEASE
     Dosage: 25 MG;QD
  2. INFLIXIMAB (INFLIXIMAB) [Suspect]
     Indication: CROHN'S DISEASE
     Dosage: 350 MG

REACTIONS (9)
  - PROCTITIS [None]
  - EPSTEIN-BARR VIRUS ANTIGEN POSITIVE [None]
  - MULTI-ORGAN FAILURE [None]
  - SEPTIC SHOCK [None]
  - HEPATOSPLENIC T-CELL LYMPHOMA [None]
  - HISTIOCYTOSIS HAEMATOPHAGIC [None]
  - KLEBSIELLA INFECTION [None]
  - INFECTION [None]
  - ESCHERICHIA SEPSIS [None]
